FAERS Safety Report 16616370 (Version 1)
Quarter: 2019Q3

REPORT INFORMATION
  Report Type: Spontaneous
  Country: US (occurrence: US)
  Receive Date: 20190723
  Receipt Date: 20190723
  Transmission Date: 20191004
  Serious: No
  Sender: FDA-Public Use
  Company Number: None

PATIENT
  Age: 37 Year
  Sex: Female
  Weight: 49.95 kg

DRUGS (6)
  1. MULTIVITAMIN [Concomitant]
     Active Substance: VITAMINS
  2. XELJANZ [Suspect]
     Active Substance: TOFACITINIB CITRATE
     Indication: COLITIS ULCERATIVE
     Dosage: ?          QUANTITY:1 TABLET(S);?
     Dates: start: 20190702, end: 20190704
  3. ZINC. [Concomitant]
     Active Substance: ZINC
  4. IRON [Concomitant]
     Active Substance: IRON
  5. FISH OIL [Concomitant]
     Active Substance: FISH OIL
  6. GABA [Concomitant]
     Active Substance: HOMEOPATHICS

REACTIONS (2)
  - Rash [None]
  - Alopecia [None]

NARRATIVE: CASE EVENT DATE: 20190709
